FAERS Safety Report 5281830-3 (Version None)
Quarter: 2007Q1

REPORT INFORMATION
  Report Type: 
  Country: None (occurrence: None)
  Receive Date: 20070330
  Receipt Date: 20070313
  Transmission Date: 20070707
  Serious: Yes (Life-Threatening, Hospitalization)
  Sender: FDA-Public Use
  Company Number: US-MERCK-0609USA04307

PATIENT
  Age: 40 Year
  Sex: Female

DRUGS (4)
  1. ZETIA [Suspect]
     Route: 048
  2. [THERAPY UNSPECIFIED] [Suspect]
     Route: 065
  3. AVELOX [Suspect]
     Indication: EAR INFECTION
     Route: 048
     Dates: start: 20060601, end: 20060601
  4. [THERAPY UNSPECIFIED] [Concomitant]
     Route: 065

REACTIONS (10)
  - ALANINE AMINOTRANSFERASE INCREASED [None]
  - ASPARTATE AMINOTRANSFERASE INCREASED [None]
  - HEPATIC FAILURE [None]
  - HEPATIC FUNCTION ABNORMAL [None]
  - HEPATIC NECROSIS [None]
  - HEPATOTOXICITY [None]
  - LIVER DISORDER [None]
  - MALAISE [None]
  - RASH [None]
  - YELLOW SKIN [None]
